FAERS Safety Report 10658469 (Version 2)
Quarter: 2017Q3

REPORT INFORMATION
  Report Type: Report from Study
  Country: KR (occurrence: KR)
  Receive Date: 20141217
  Receipt Date: 20170717
  Transmission Date: 20171127
  Serious: Yes (Hospitalization)
  Sender: FDA-Public Use
  Company Number: KR-OTSUKA-JP-2014-19639

PATIENT
  Age: 59 Year
  Sex: Male

DRUGS (13)
  1. TUBIS [Concomitant]
     Indication: HYPONATRAEMIA
     Dosage: 4 MG, QD
     Route: 048
     Dates: start: 20140711
  2. COZAAR [Concomitant]
     Active Substance: LOSARTAN POTASSIUM
     Indication: HYPONATRAEMIA
     Dosage: 1 DF, QD
     Route: 048
     Dates: start: 20141102
  3. URSA [Concomitant]
     Indication: HYPONATRAEMIA
     Dosage: 3 DF, QD
     Route: 048
     Dates: start: 20141115
  4. CARNITIL [Concomitant]
     Indication: HYPONATRAEMIA
     Dosage: 1 DF, QD
     Route: 048
     Dates: start: 20141101
  5. AIRTAL [Concomitant]
     Active Substance: ACECLOFENAC
     Indication: HYPONATRAEMIA
     Dosage: 2 DF, QD
     Route: 048
     Dates: start: 20141117, end: 20141125
  6. EXOPERIN [Concomitant]
     Indication: HYPONATRAEMIA
     Dosage: 1 DF, QD
     Route: 048
     Dates: start: 20141102
  7. THIAMINE CHLORID [Concomitant]
     Indication: HYPONATRAEMIA
     Dosage: 50 MG, QD
     Route: 042
     Dates: start: 20141101, end: 20141125
  8. NORVASC [Concomitant]
     Active Substance: AMLODIPINE BESYLATE
     Indication: HYPONATRAEMIA
     Dosage: 1 DF, QD
     Route: 048
     Dates: start: 20141102
  9. ZANTAC [Concomitant]
     Active Substance: RANITIDINE HYDROCHLORIDE
     Indication: HYPONATRAEMIA
     Dosage: 2 DF, QD
     Route: 048
     Dates: start: 20141102
  10. TOLVAPTAN [Suspect]
     Active Substance: TOLVAPTAN
     Indication: HYPONATRAEMIA
     Dosage: 15 MG, QD
     Route: 048
     Dates: start: 20141124, end: 20141208
  11. PYRIDOXIN [Concomitant]
     Active Substance: PYRIDOXINE
     Indication: HYPONATRAEMIA
     Dosage: 1 DF, QD
     Route: 048
     Dates: start: 20140711
  12. PENNEL [Concomitant]
     Indication: HYPONATRAEMIA
     Dosage: 3 DF, QD
     Route: 048
     Dates: start: 20141115
  13. PLATLESS [Concomitant]
     Indication: HYPONATRAEMIA
     Dosage: 1 DF, QD
     Route: 048
     Dates: start: 20141101

REACTIONS (1)
  - Hyperbilirubinaemia [Recovered/Resolved]

NARRATIVE: CASE EVENT DATE: 20141208
